FAERS Safety Report 5254711-9 (Version None)
Quarter: 2007Q1

REPORT INFORMATION
  Report Type: 
  Country: None (occurrence: None)
  Receive Date: 20070227
  Receipt Date: 20070211
  Transmission Date: 20070707
  Serious: Yes (Hospitalization)
  Sender: FDA-Public Use
  Company Number: PIR#0702039

PATIENT
  Age: 50 Day
  Sex: Male

DRUGS (1)
  1. CEFTRIAXONE [Suspect]
     Indication: PNEUMONIA KLEBSIELLA
     Dosage: 2 DOSES

REACTIONS (9)
  - ANAPHYLACTOID REACTION [None]
  - APNOEA [None]
  - BRADYCARDIA [None]
  - CAESAREAN SECTION [None]
  - KLEBSIELLA INFECTION [None]
  - PALLOR [None]
  - PREMATURE BABY [None]
  - SHOCK [None]
  - URINARY TRACT INFECTION [None]
